FAERS Safety Report 9882965 (Version 1)
Quarter: 2014Q1

REPORT INFORMATION
  Report Type: Spontaneous
  Country: None (occurrence: None)
  Receive Date: 20140204
  Receipt Date: 20140204
  Transmission Date: 20141002
  Serious: Yes (Other)
  Sender: FDA-Public Use
  Company Number: FK201400343

PATIENT
  Age: 61 Year
  Sex: Female
  Weight: 88.9 kg

DRUGS (5)
  1. EPIRUBICIN [Suspect]
     Indication: BREAST CANCER FEMALE
     Route: 051
     Dates: start: 20101210, end: 20110428
  2. DOCETAXEL (MANUFACTURER UNKNOWN) (DOCETAXEL) (DOCETAXEL) [Suspect]
     Indication: BREAST CANCER FEMALE
     Route: 051
     Dates: start: 20101210, end: 20110428
  3. CYCLOPHOSPHAMIDE (CYCLOPHOSPHAMIDE) (CYCLOPHOSPHAMIDE) [Suspect]
     Indication: BREAST CANCER FEMALE
     Route: 051
     Dates: start: 20101210, end: 20110428
  4. HERCEPTIN (TRASTUZUMAB) (TRASTUZUMAB) [Suspect]
     Indication: BREAST CANCER FEMALE
     Route: 051
     Dates: start: 20101210, end: 20110428
  5. PREDNISOLONE (PREDNISOLONE) (PREDNISOLONE) [Suspect]
     Indication: BREAST CANCER FEMALE
     Route: 051
     Dates: start: 20101210, end: 20110428

REACTIONS (7)
  - Hypoacusis [None]
  - Blindness [None]
  - Photopsia [None]
  - Headache [None]
  - Infusion site nerve damage [None]
  - Pain [None]
  - Arthralgia [None]
